FAERS Safety Report 8210176-6 (Version None)
Quarter: 2012Q1

REPORT INFORMATION
  Report Type: 
  Country: None (occurrence: None)
  Receive Date: 20120314
  Receipt Date: 20110930
  Transmission Date: 20120608
  Serious: No
  Sender: FDA-Public Use
  Company Number: US-ASTRAZENECA-2009UW06839

PATIENT
  Age: 61 Year
  Sex: Male

DRUGS (11)
  1. ALPRAZOLAM [Concomitant]
     Indication: ANXIETY
  2. TOPROL-XL [Suspect]
     Route: 048
  3. TOPROL-XL [Suspect]
     Indication: HYPERTENSION
     Route: 048
  4. TOPROL-XL [Suspect]
     Route: 048
  5. XANAX [Concomitant]
     Indication: ANXIETY
  6. AMIODARONE HCL [Suspect]
     Route: 065
  7. BUSPAR [Concomitant]
  8. TOPROL-XL [Suspect]
     Route: 048
  9. TOPROL-XL [Suspect]
     Route: 048
  10. AMIODARONE HCL [Suspect]
     Route: 065
  11. ALPRAZOLAM [Concomitant]
     Indication: PANIC DISORDER

REACTIONS (19)
  - FEELING ABNORMAL [None]
  - INSOMNIA [None]
  - BRONCHOSPASM [None]
  - VASOSPASM [None]
  - CHEST PAIN [None]
  - NERVOUSNESS [None]
  - ALOPECIA [None]
  - URINARY TRACT DISORDER [None]
  - NASAL CONGESTION [None]
  - DYSPNOEA [None]
  - PERIPHERAL COLDNESS [None]
  - SWELLING FACE [None]
  - SINUSITIS [None]
  - ABDOMINAL DISCOMFORT [None]
  - FATIGUE [None]
  - HYPERTENSION [None]
  - INCORRECT DOSE ADMINISTERED [None]
  - ADVERSE DRUG REACTION [None]
  - VISION BLURRED [None]
